FAERS Safety Report 17164797 (Version 1)
Quarter: 2019Q4

REPORT INFORMATION
  Report Type: Spontaneous
  Country: US (occurrence: US)
  Receive Date: 20191217
  Receipt Date: 20191217
  Transmission Date: 20200122
  Serious: No
  Sender: FDA-Public Use
  Company Number: US-ROCHE-2342161

PATIENT
  Age: 68 Year
  Sex: Female
  Weight: 87.62 kg

DRUGS (8)
  1. LUCENTIS [Suspect]
     Active Substance: RANIBIZUMAB
     Indication: RETINAL DETACHMENT
     Route: 050
     Dates: start: 201904
  2. COMBIGAN [Concomitant]
     Active Substance: BRIMONIDINE TARTRATE\TIMOLOL MALEATE
     Dosage: 0.2/0.5% (1 DROP);
     Route: 065
  3. LUCENTIS [Suspect]
     Active Substance: RANIBIZUMAB
     Indication: MACULAR DEGENERATION
     Route: 050
     Dates: start: 201905
  4. PROLENSA [Concomitant]
     Active Substance: BROMFENAC SODIUM
     Dosage: 0.7% 1 DROP IN EACH EYE IN THE MORNING;
     Route: 065
  5. AZOPT [Concomitant]
     Active Substance: BRINZOLAMIDE
     Route: 065
  6. VYZULTA [Concomitant]
     Active Substance: LATANOPROSTENE BUNOD
     Dosage: 0.24% AT NIGHT;
     Route: 065
  7. NYSTATIN. [Concomitant]
     Active Substance: NYSTATIN
     Route: 065
  8. LATANOPROST. [Concomitant]
     Active Substance: LATANOPROST
     Dosage: 0.5% AT NIGHT;
     Route: 065

REACTIONS (7)
  - Cough [Not Recovered/Not Resolved]
  - Dry eye [Not Recovered/Not Resolved]
  - Oral fungal infection [Not Recovered/Not Resolved]
  - Eye pain [Not Recovered/Not Resolved]
  - Dry mouth [Not Recovered/Not Resolved]
  - Oropharyngeal pain [Not Recovered/Not Resolved]
  - Sinus headache [Not Recovered/Not Resolved]

NARRATIVE: CASE EVENT DATE: 201905
